FAERS Safety Report 8449666-X (Version None)
Quarter: 2012Q2

REPORT INFORMATION
  Report Type: 
  Country: None (occurrence: None)
  Receive Date: 20120620
  Receipt Date: 20120615
  Transmission Date: 20120825
  Serious: No
  Sender: FDA-Public Use
  Company Number: US-PFIZER INC-2012145073

PATIENT
  Sex: Female

DRUGS (2)
  1. PRISTIQ [Suspect]
     Dosage: UNK
     Route: 048
     Dates: end: 20120101
  2. PRISTIQ [Suspect]
     Dosage: TWO 50 MG, UNK
     Route: 048

REACTIONS (6)
  - DEPRESSION [None]
  - INSOMNIA [None]
  - HOT FLUSH [None]
  - DIZZINESS [None]
  - ANXIETY [None]
  - MALAISE [None]
